FAERS Safety Report 5702638-8 (Version None)
Quarter: 2008Q2

REPORT INFORMATION
  Report Type: 
  Country: None (occurrence: None)
  Receive Date: 20080411
  Receipt Date: 20080401
  Transmission Date: 20081010
  Serious: Yes (Hospitalization, Other)
  Sender: FDA-Public Use
  Company Number: US-BAYER-200811191NA

PATIENT
  Age: 64 Year
  Sex: Female
  Weight: 74 kg

DRUGS (12)
  1. AVELOX [Suspect]
     Indication: SINUSITIS
     Dosage: TOTAL DAILY DOSE: 400 MG  UNIT DOSE: 400 MG
     Route: 048
     Dates: start: 20050126
  2. KETEK [Suspect]
     Indication: BRONCHITIS
     Dosage: TOTAL DAILY DOSE: 800 MG
  3. NAPROSYN [Suspect]
     Indication: PAIN
  4. LIPITOR [Concomitant]
     Dosage: TOTAL DAILY DOSE: 10 MG
  5. ACTONEL [Concomitant]
  6. TOPROL-XL [Concomitant]
     Dosage: TOTAL DAILY DOSE: 100 MG
  7. ASPIRIN [Concomitant]
     Dosage: TOTAL DAILY DOSE: 81 MG
  8. ALBUTEROL [Concomitant]
  9. ASMANEX TWISTHALER [Concomitant]
  10. NASONEX [Concomitant]
  11. SINGULAIR [Concomitant]
  12. XOPENEX [Concomitant]

REACTIONS (13)
  - ABDOMINAL PAIN UPPER [None]
  - ANAPHYLACTIC REACTION [None]
  - ATRIAL FIBRILLATION [None]
  - CARDIOMEGALY [None]
  - CHEST PAIN [None]
  - DRUG HYPERSENSITIVITY [None]
  - DYSPHAGIA [None]
  - DYSPNOEA [None]
  - HYPOTENSION [None]
  - MEMORY IMPAIRMENT [None]
  - PYREXIA [None]
  - SHOCK [None]
  - VOMITING [None]
